FAERS Safety Report 17400583 (Version 1)
Quarter: 2020Q1

REPORT INFORMATION
  Report Type: Spontaneous
  Country: US (occurrence: US)
  Receive Date: 20200211
  Receipt Date: 20200211
  Transmission Date: 20200409
  Serious: No
  Sender: FDA-Public Use
  Company Number: US-JNJFOC-20200151088

PATIENT
  Age: 77 Year
  Sex: Female
  Weight: 86.71 kg

DRUGS (2)
  1. PEPCID [Suspect]
     Active Substance: FAMOTIDINE
     Indication: GASTROOESOPHAGEAL REFLUX DISEASE
  2. PEPCID [Suspect]
     Active Substance: FAMOTIDINE
     Indication: GASTRIC DISORDER
     Dosage: 2 CAPLETS EACH TIME
     Route: 048
     Dates: start: 20200129

REACTIONS (3)
  - Overdose [Unknown]
  - Nasal discomfort [Recovered/Resolved]
  - Periorbital swelling [Not Recovered/Not Resolved]

NARRATIVE: CASE EVENT DATE: 202001
